FAERS Safety Report 7752447-3 (Version None)
Quarter: 2011Q3

REPORT INFORMATION
  Report Type: 
  Country: None (occurrence: None)
  Receive Date: 20110915
  Receipt Date: 20110913
  Transmission Date: 20111222
  Serious: Yes (Death, Other)
  Sender: FDA-Public Use
  Company Number: PHHY2011MX81025

PATIENT
  Sex: Male

DRUGS (2)
  1. GLEEVEC [Suspect]
     Indication: GASTROINTESTINAL STROMAL TUMOUR
     Dosage: 400 MG, UNK
     Dates: start: 20091019, end: 20110708
  2. GLEEVEC [Suspect]
     Dosage: 800 MG,
     Dates: start: 20110708, end: 20110710

REACTIONS (4)
  - NEOPLASM PROGRESSION [None]
  - NEOPLASM MALIGNANT [None]
  - GASTROINTESTINAL STROMAL TUMOUR [None]
  - DEATH [None]
